FAERS Safety Report 12591725 (Version 1)
Quarter: 2016Q3

REPORT INFORMATION
  Report Type: Spontaneous
  Country: US (occurrence: None)
  Receive Date: 20160725
  Receipt Date: 20160725
  Transmission Date: 20161109
  Serious: Yes (Other)
  Sender: FDA-Public Use
  Company Number: None

PATIENT
  Age: 48 Year
  Sex: Female
  Weight: 68.04 kg

DRUGS (1)
  1. DELSYM [Suspect]
     Active Substance: DEXTROMETHORPHAN
     Indication: COUGH
     Dates: start: 20160712

REACTIONS (5)
  - Skin haemorrhage [None]
  - Delirium [None]
  - Road traffic accident [None]
  - Impaired driving ability [None]
  - Feeling abnormal [None]

NARRATIVE: CASE EVENT DATE: 20160712
